FAERS Safety Report 6618011-4 (Version None)
Quarter: 2010Q1

REPORT INFORMATION
  Report Type: 
  Country: None (occurrence: None)
  Receive Date: 20100308
  Receipt Date: 20100223
  Transmission Date: 20100710
  Serious: Yes (Hospitalization, Disabling, Other)
  Sender: FDA-Public Use
  Company Number: US-PFIZER INC-2010022656

PATIENT
  Sex: Male
  Weight: 110.66 kg

DRUGS (8)
  1. VIAGRA [Suspect]
     Indication: ERECTILE DYSFUNCTION
     Dosage: 25 MG, AS NEEDED
     Route: 048
     Dates: start: 20030101, end: 20090101
  2. VIAGRA [Suspect]
     Dosage: 100 MG, AS NEEDED
  3. FELODIPINE [Concomitant]
     Indication: HYPERTENSION
     Dosage: 10 MG, 2X/DAY
  4. LISINOPRIL [Concomitant]
     Indication: HYPERTENSION
     Dosage: 40 MG, 1X/DAY
  5. SPIRONOLACTONE [Concomitant]
     Dosage: 25 MG, 2X/DAY
  6. CIALIS [Concomitant]
     Dosage: UNK
  7. LEVITRA [Concomitant]
     Dosage: UNK
  8. TESTOSTERONE [Concomitant]
     Dosage: UNK

REACTIONS (5)
  - BACK DISORDER [None]
  - BLOOD CHOLESTEROL INCREASED [None]
  - CARDIAC PACEMAKER INSERTION [None]
  - EXTRASYSTOLES [None]
  - HYPERTENSION [None]
